FAERS Safety Report 9528252 (Version 3)
Quarter: 2013Q4

REPORT INFORMATION
  Report Type: Report from Study
  Country: CA (occurrence: CA)
  Receive Date: 20130917
  Receipt Date: 20131129
  Transmission Date: 20140711
  Serious: Yes (Other)
  Sender: FDA-Public Use
  Company Number: PHHY2013CA084581

PATIENT
  Age: 53 Year
  Sex: Female

DRUGS (3)
  1. GLEEVEC [Suspect]
     Indication: CHRONIC MYELOID LEUKAEMIA
     Dosage: 400 MG, QD
     Route: 048
     Dates: start: 20130726, end: 20130731
  2. GLEEVEC [Suspect]
     Dosage: UNK UKN, UNK
     Route: 048
     Dates: start: 201307
  3. IMATINIB [Suspect]
     Indication: CHRONIC MYELOID LEUKAEMIA
     Dosage: UNK UKN, UNK
     Dates: start: 20130801

REACTIONS (4)
  - Nephrolithiasis [Unknown]
  - Malaise [Unknown]
  - Fatigue [Unknown]
  - Nasopharyngitis [Unknown]
